FAERS Safety Report 11366803 (Version 1)
Quarter: 2015Q3

REPORT INFORMATION
  Report Type: Spontaneous
  Country: US (occurrence: US)
  Receive Date: 20150811
  Receipt Date: 20150811
  Transmission Date: 20151125
  Serious: No
  Sender: FDA-Public Use
  Company Number: US-ELI_LILLY_AND_COMPANY-US201105004380

PATIENT
  Sex: Male

DRUGS (2)
  1. AXIRON [Suspect]
     Active Substance: TESTOSTERONE
     Indication: BLOOD TESTOSTERONE DECREASED
     Dosage: 60 MG, UNKNOWN
  2. AXIRON [Suspect]
     Active Substance: TESTOSTERONE
     Dosage: 120 MG, UNKNOWN
     Dates: start: 20110511

REACTIONS (7)
  - Emotional distress [Unknown]
  - Lethargy [Unknown]
  - Skin burning sensation [Unknown]
  - General physical condition abnormal [Unknown]
  - Accidental exposure to product [Unknown]
  - Drug ineffective [Unknown]
  - Disturbance in sexual arousal [Unknown]
